FAERS Safety Report 10523039 (Version 1)
Quarter: 2014Q4

REPORT INFORMATION
  Report Type: Spontaneous
  Country: GB (occurrence: None)
  Receive Date: 20141010
  Receipt Date: 20141010
  Transmission Date: 20150528
  Serious: Yes (Other)
  Sender: FDA-Public Use
  Company Number: B1033853A

PATIENT
  Sex: Male

DRUGS (2)
  1. AQUAFRESH COMPLETE CARE (SODIUM FLUORIDE, TRICLOSAN) TOOTHPASTE [Suspect]
     Active Substance: SODIUM FLUORIDE\TRICLOSAN
     Indication: DENTAL CLEANING
     Dosage: 2D, DENTAL
     Route: 004
  2. MULTIVITAMINS (VITAMINS NOS) [Concomitant]

REACTIONS (3)
  - Feeding disorder [None]
  - Stomatitis [None]
  - Oral pain [None]
